FAERS Safety Report 17869832 (Version 4)
Quarter: 2020Q3

REPORT INFORMATION
  Report Type: Other
  Country: ES (occurrence: ES)
  Receive Date: 20200608
  Receipt Date: 20200915
  Transmission Date: 20201103
  Serious: Yes (Other)
  Sender: FDA-Public Use
  Company Number: ES-ROCHE-2610365

PATIENT
  Age: 39 Year
  Sex: Female

DRUGS (12)
  1. OPSUMIT [Concomitant]
     Active Substance: MACITENTAN
  2. MYCOPHENOLATE MOFETIL. [Suspect]
     Active Substance: MYCOPHENOLATE MOFETIL
     Indication: IMMUNOSUPPRESSANT DRUG THERAPY
     Route: 065
  3. RITUXIMAB. [Suspect]
     Active Substance: RITUXIMAB
     Indication: MIXED CONNECTIVE TISSUE DISEASE
  4. BOSENTAN. [Suspect]
     Active Substance: BOSENTAN
     Indication: MIXED CONNECTIVE TISSUE DISEASE
     Route: 048
  5. CYCLOPHOSPHAMIDE. [Concomitant]
     Active Substance: CYCLOPHOSPHAMIDE
     Route: 050
  6. AZATHIOPRINE. [Suspect]
     Active Substance: AZATHIOPRINE
     Indication: IMMUNOSUPPRESSANT DRUG THERAPY
     Route: 065
  7. TACROLIMUS. [Suspect]
     Active Substance: TACROLIMUS
     Indication: MIXED CONNECTIVE TISSUE DISEASE
     Route: 065
  8. ALPROSTADIL. [Concomitant]
     Active Substance: ALPROSTADIL
     Indication: RAYNAUD^S PHENOMENON
  9. MYCOPHENOLATE MOFETIL. [Suspect]
     Active Substance: MYCOPHENOLATE MOFETIL
     Indication: MIXED CONNECTIVE TISSUE DISEASE
  10. RITUXIMAB. [Suspect]
     Active Substance: RITUXIMAB
     Indication: IMMUNOSUPPRESSANT DRUG THERAPY
     Route: 065
  11. AZATHIOPRINE. [Suspect]
     Active Substance: AZATHIOPRINE
     Indication: MIXED CONNECTIVE TISSUE DISEASE
  12. MACITENTAN [Suspect]
     Active Substance: MACITENTAN
     Indication: SKIN ULCER
     Route: 065

REACTIONS (6)
  - Haematotoxicity [Unknown]
  - Product use in unapproved indication [Unknown]
  - Off label use [Unknown]
  - Drug interaction [Unknown]
  - Hypersensitivity [Unknown]
  - Enterocolitis [Unknown]
